FAERS Safety Report 4958997-7 (Version None)
Quarter: 2006Q1

REPORT INFORMATION
  Report Type: 
  Country: None (occurrence: None)
  Receive Date: 20060331
  Receipt Date: 20060321
  Transmission Date: 20060701
  Serious: Yes (Hospitalization)
  Sender: FDA-Public Use
  Company Number: 2006UW04838

PATIENT
  Age: 72 Year
  Sex: Female

DRUGS (8)
  1. ATACAND [Suspect]
     Indication: HYPERTENSION
     Route: 048
     Dates: start: 20050101
  2. ATACAND [Suspect]
     Route: 048
     Dates: start: 20050101
  3. ATACAND [Suspect]
     Route: 048
     Dates: start: 20060301
  4. NORVASC [Concomitant]
     Route: 048
  5. ATENOLOL [Concomitant]
  6. ATENOLOL [Concomitant]
  7. ATENOLOL [Concomitant]
  8. BLOOD THINNERS [Concomitant]
     Indication: PLATELET COUNT INCREASED

REACTIONS (4)
  - DIZZINESS [None]
  - FALL [None]
  - ORTHOSTATIC HYPOTENSION [None]
  - SYNCOPE [None]
